FAERS Safety Report 24036099 (Version 2)
Quarter: 2024Q3

REPORT INFORMATION
  Report Type: Spontaneous
  Country: ES (occurrence: ES)
  Receive Date: 20240701
  Receipt Date: 20240819
  Transmission Date: 20241017
  Serious: Yes (Death, Other)
  Sender: RIGEL PHARMACEUTICALS
  Company Number: ES-RIGEL Pharmaceuticals, INC-20240600050

PATIENT
  Age: 81 Year
  Sex: Male

DRUGS (1)
  1. FOSTAMATINIB DISODIUM [Suspect]
     Active Substance: FOSTAMATINIB DISODIUM
     Indication: Immune thrombocytopenia
     Dosage: UNK
     Route: 065

REACTIONS (3)
  - Cerebral haemorrhage [Fatal]
  - Hypertension [Unknown]
  - Neutropenia [Unknown]

NARRATIVE: CASE EVENT DATE: 20220821
